FAERS Safety Report 9207371 (Version 2)
Quarter: 2014Q1

REPORT INFORMATION
  Report Type: Spontaneous
  Country: US (occurrence: US)
  Receive Date: 20130403
  Receipt Date: 20140114
  Transmission Date: 20141002
  Serious: Yes (Other)
  Sender: FDA-Public Use
  Company Number: US-BAYER-2013-040170

PATIENT
  Age: 26 Year
  Sex: Female

DRUGS (10)
  1. YAZ [Suspect]
     Dosage: UNK
     Dates: start: 200901, end: 200904
  2. YASMIN [Suspect]
     Dosage: UNK
     Dates: start: 200901, end: 200904
  3. PREVACID [Concomitant]
     Dosage: 30 MG, UNK
     Route: 048
     Dates: start: 20090121
  4. METOCLOPRAMIDE [Concomitant]
     Dosage: 5 MG, UNK
     Route: 048
     Dates: start: 20090121
  5. CARAFATE [Concomitant]
     Dosage: 1 G, UNK
     Route: 048
     Dates: start: 20090121
  6. METFORMIN HYDROCHLORIDE [Concomitant]
     Dosage: 500 MG, UNK
     Route: 048
     Dates: start: 20090121
  7. NEXIUM [Concomitant]
     Dosage: 40 MG, UNK
     Route: 048
     Dates: start: 20090121
  8. BENEFIBER [Concomitant]
     Dosage: UNK
     Route: 048
     Dates: start: 20090121
  9. SENNATAB [Concomitant]
     Dosage: UNK
     Route: 048
     Dates: start: 20090121
  10. REGLAN [Concomitant]

REACTIONS (7)
  - Cholecystitis chronic [None]
  - Gallbladder disorder [None]
  - Injury [None]
  - Pain [None]
  - Emotional distress [None]
  - Anxiety [None]
  - Psychological trauma [None]
